FAERS Safety Report 7077734-6 (Version None)
Quarter: 2010Q4

REPORT INFORMATION
  Report Type: 
  Country: None (occurrence: None)
  Receive Date: 20101021
  Receipt Date: 20101011
  Transmission Date: 20110411
  Serious: Yes (Death)
  Sender: FDA-Public Use
  Company Number: 017240

PATIENT
  Sex: Male
  Weight: 101.7 kg

DRUGS (4)
  1. VIMPAT [Suspect]
     Dosage: (200 MG BID ORAL), (100 MG BID ORAL)
     Route: 048
  2. TEGRETOL [Concomitant]
  3. KEPPRA [Concomitant]
  4. CLOBAZAM [Concomitant]

REACTIONS (7)
  - ACUTE LEFT VENTRICULAR FAILURE [None]
  - ARTERIOSCLEROSIS CORONARY ARTERY [None]
  - CARDIAC ARREST [None]
  - CIRCULATORY COLLAPSE [None]
  - CORONARY ARTERY THROMBOSIS [None]
  - MALAISE [None]
  - MYOCARDIAL INFARCTION [None]
